FAERS Safety Report 9616020 (Version 1)
Quarter: 2013Q4

REPORT INFORMATION
  Report Type: Spontaneous
  Country: US (occurrence: US)
  Receive Date: 20131011
  Receipt Date: 20131011
  Transmission Date: 20140711
  Serious: No
  Sender: FDA-Public Use
  Company Number: US-PURDUE-USA-2013-0100339

PATIENT
  Sex: Male

DRUGS (1)
  1. BUTRANS [Suspect]
     Indication: PAIN
     Dosage: 5 MCG/HR, 1/WEEK
     Route: 062

REACTIONS (3)
  - Application site discolouration [Unknown]
  - Application site pain [Recovered/Resolved]
  - Drug administered at inappropriate site [Unknown]
